FAERS Safety Report 23871641 (Version 3)
Quarter: 2024Q3

REPORT INFORMATION
  Report Type: Spontaneous
  Country: US (occurrence: None)
  Receive Date: 20240519
  Receipt Date: 20240821
  Transmission Date: 20241017
  Serious: Yes (Other)
  Sender: ASTRAZENECA
  Company Number: 2024A112804

PATIENT
  Age: 66 Year
  Sex: Female
  Weight: 112.9 kg

DRUGS (1)
  1. BUDESONIDE\FORMOTEROL [Suspect]
     Active Substance: BUDESONIDE\FORMOTEROL
     Indication: Chronic obstructive pulmonary disease
     Dosage: UNKNOWN DOSE AND FREQUENCY; 160- 4.5 UNKNOWN
     Route: 055

REACTIONS (9)
  - Chronic obstructive pulmonary disease [Unknown]
  - Memory impairment [Unknown]
  - Poor quality device used [Unknown]
  - Incorrect dose administered by device [Unknown]
  - Device delivery system issue [Unknown]
  - Nervousness [Unknown]
  - Drug ineffective [Unknown]
  - Device malfunction [Unknown]
  - Drug dose omission by device [Unknown]

NARRATIVE: CASE EVENT DATE: 20240507
